FAERS Safety Report 12686584 (Version 1)
Quarter: 2016Q3

REPORT INFORMATION
  Report Type: Spontaneous
  Country: US (occurrence: US)
  Receive Date: 20160825
  Receipt Date: 20160825
  Transmission Date: 20161109
  Serious: No
  Sender: FDA-Public Use
  Company Number: US-NOVOPROD-465783

PATIENT
  Age: 69 Year
  Sex: Female

DRUGS (1)
  1. VICTOZA [Suspect]
     Active Substance: LIRAGLUTIDE
     Indication: TYPE 2 DIABETES MELLITUS
     Dosage: 0.6 MG, QD
     Route: 058

REACTIONS (5)
  - Tremor [Recovered/Resolved]
  - Heart rate increased [Recovered/Resolved]
  - Rash pruritic [Recovered/Resolved]
  - Swollen tongue [Recovered/Resolved]
  - Pharyngeal oedema [Recovered/Resolved]
